FAERS Safety Report 22974691 (Version 9)
Quarter: 2025Q3

REPORT INFORMATION
  Report Type: Report from Study
  Country: CA (occurrence: CA)
  Receive Date: 20230923
  Receipt Date: 20250929
  Transmission Date: 20251021
  Serious: Yes (Other)
  Sender: TAKEDA
  Company Number: CA-TAKEDA-2023TUS092263

PATIENT
  Age: 48 Year
  Sex: Female

DRUGS (13)
  1. VEDOLIZUMAB [Suspect]
     Active Substance: VEDOLIZUMAB
     Indication: Colitis ulcerative
  2. VEDOLIZUMAB [Suspect]
     Active Substance: VEDOLIZUMAB
  3. VEDOLIZUMAB [Suspect]
     Active Substance: VEDOLIZUMAB
  4. VEDOLIZUMAB [Suspect]
     Active Substance: VEDOLIZUMAB
  5. VEDOLIZUMAB [Suspect]
     Active Substance: VEDOLIZUMAB
  6. VEDOLIZUMAB [Suspect]
     Active Substance: VEDOLIZUMAB
  7. CORTENEMA [Concomitant]
     Active Substance: HYDROCORTISONE
  8. MESALAMINE [Concomitant]
     Active Substance: MESALAMINE
  9. SYNTHROID [Concomitant]
     Active Substance: LEVOTHYROXINE SODIUM
  10. IRON [Concomitant]
     Active Substance: IRON
  11. IRON [Concomitant]
     Active Substance: IRON
  12. Salofalk [Concomitant]
  13. PREDNISONE [Concomitant]
     Active Substance: PREDNISONE

REACTIONS (9)
  - Pneumonia [Unknown]
  - Dysphonia [Not Recovered/Not Resolved]
  - Chest pain [Not Recovered/Not Resolved]
  - Nasal congestion [Unknown]
  - Cough [Not Recovered/Not Resolved]
  - Sinusitis [Recovered/Resolved]
  - Oropharyngeal pain [Unknown]
  - Nasopharyngitis [Recovered/Resolved]
  - Pyrexia [Recovered/Resolved]

NARRATIVE: CASE EVENT DATE: 20231119
